FAERS Safety Report 15507576 (Version 5)
Quarter: 2018Q4

REPORT INFORMATION
  Report Type: Report from Study
  Country: JP (occurrence: JP)
  Receive Date: 20181016
  Receipt Date: 20181130
  Transmission Date: 20190205
  Serious: Yes (Life-Threatening, Hospitalization)
  Sender: FDA-Public Use
  Company Number: JP-TAKEDA-2018TJP024550

PATIENT
  Age: 63 Year
  Sex: Female
  Weight: 66.5 kg

DRUGS (14)
  1. SUGLAT [Concomitant]
     Active Substance: IPRAGLIFLOZIN L-PROLINE
     Indication: DIABETES MELLITUS
     Dosage: 50 MG, QD
     Route: 048
  2. REBAMIPIDE [Concomitant]
     Active Substance: REBAMIPIDE
     Indication: GASTRITIS PROPHYLAXIS
     Dosage: 100 MG, UNK
     Route: 048
     Dates: start: 20180927
  3. CARBOCISTEINE [Concomitant]
     Active Substance: CARBOCYSTEINE
     Indication: REMOVAL OF FOREIGN BODY FROM THROAT
     Dosage: 250 MG, TID
     Route: 048
     Dates: start: 20180724
  4. VALSARTAN. [Concomitant]
     Active Substance: VALSARTAN
     Indication: HYPERTENSION
     Dosage: 80 MG, QD
     Route: 048
  5. LOXOPROFEN                         /00890702/ [Concomitant]
     Active Substance: LOXOPROFEN
     Indication: ANALGESIC THERAPY
     Dosage: 60 MG, UNK
     Route: 048
     Dates: start: 20180927
  6. BRIGATINIB [Suspect]
     Active Substance: BRIGATINIB
     Indication: NON-SMALL CELL LUNG CANCER
     Dosage: 90 MG, UNK
     Route: 048
     Dates: start: 20180807, end: 20180813
  7. LUPRAC [Concomitant]
     Active Substance: TORSEMIDE
     Indication: POLYURIA
     Dosage: 4 MG, QD
     Route: 048
  8. PAXIL [Concomitant]
     Active Substance: PAROXETINE HYDROCHLORIDE
     Indication: PANIC DISORDER
     Dosage: 10 MG, QD
     Route: 048
  9. BRIGATINIB [Suspect]
     Active Substance: BRIGATINIB
     Dosage: 180 MG, UNK
     Route: 048
     Dates: start: 20180814, end: 20181009
  10. GLACTIV [Concomitant]
     Active Substance: SITAGLIPTIN
     Indication: DIABETES MELLITUS
     Dosage: 50 MG, QD
     Route: 048
  11. SOLULACT D [Concomitant]
     Indication: FLUID REPLACEMENT
     Dosage: 500 ML, BID
     Route: 041
     Dates: start: 20181009
  12. AMLODIPINE                         /00972402/ [Concomitant]
     Active Substance: AMLODIPINE BESYLATE
     Indication: HYPERTENSION
     Dosage: 5 MG, QD
     Route: 048
  13. AMBROXOL HYDROCHLORIDE [Concomitant]
     Active Substance: AMBROXOL HYDROCHLORIDE
     Indication: REMOVAL OF FOREIGN BODY FROM THROAT
     Dosage: 15 MG, TID
     Route: 048
     Dates: start: 20180904
  14. OMEPRAZOLE                         /00661202/ [Concomitant]
     Active Substance: OMEPRAZOLE SODIUM
     Indication: GASTRITIS PROPHYLAXIS
     Dosage: 20 MG, QD
     Route: 041
     Dates: start: 20181009

REACTIONS (3)
  - Dyspnoea [Not Recovered/Not Resolved]
  - Lung disorder [Not Recovered/Not Resolved]
  - Stress cardiomyopathy [Recovering/Resolving]

NARRATIVE: CASE EVENT DATE: 20180809
